FAERS Safety Report 16842828 (Version 3)
Quarter: 2019Q4

REPORT INFORMATION
  Report Type: Spontaneous
  Country: US (occurrence: US)
  Receive Date: 20190924
  Receipt Date: 20191121
  Transmission Date: 20200122
  Serious: Yes (Other)
  Sender: FDA-Public Use
  Company Number: US-ALK-ABELLO A/S-2019AA003060

PATIENT

DRUGS (4)
  1. CLARITYN                           /00917501/ [Concomitant]
     Active Substance: LORATADINE
     Dosage: UNK UNK, PRN
  2. IBUPROFEN. [Concomitant]
     Active Substance: IBUPROFEN
     Dosage: 800 MILLIGRAM, TID
  3. MIX OF 7 STANDARD GRASS POLLEN [Suspect]
     Active Substance: AGROSTIS GIGANTEA POLLEN\ANTHOXANTHUM ODORATUM POLLEN\DACTYLIS GLOMERATA POLLEN\FESTUCA PRATENSIS POLLEN\LOLIUM PERENNE POLLEN\PHLEUM PRATENSE POLLEN\POA PRATENSIS POLLEN
     Dosage: 0.3 MILLILITER, 1:1W/V DILUTION.
     Route: 058
     Dates: start: 20190329, end: 20190329
  4. MIX OF 7 STANDARD GRASS POLLEN [Suspect]
     Active Substance: AGROSTIS GIGANTEA POLLEN\ANTHOXANTHUM ODORATUM POLLEN\DACTYLIS GLOMERATA POLLEN\FESTUCA PRATENSIS POLLEN\LOLIUM PERENNE POLLEN\PHLEUM PRATENSE POLLEN\POA PRATENSIS POLLEN
     Indication: HYPERSENSITIVITY
     Dosage: UNK
     Route: 058
     Dates: start: 201809, end: 20190329

REACTIONS (7)
  - Erythema [Not Recovered/Not Resolved]
  - Confusional state [Not Recovered/Not Resolved]
  - Autoimmune arthritis [Not Recovered/Not Resolved]
  - Swelling [Not Recovered/Not Resolved]
  - Lethargy [Not Recovered/Not Resolved]
  - Polyarthritis [Not Recovered/Not Resolved]
  - Sleep disorder [Not Recovered/Not Resolved]

NARRATIVE: CASE EVENT DATE: 20190329
